FAERS Safety Report 6441449-5 (Version None)
Quarter: 2009Q4

REPORT INFORMATION
  Report Type: 
  Country: None (occurrence: None)
  Receive Date: 20091116
  Receipt Date: 20091109
  Transmission Date: 20100525
  Serious: Yes (Life-Threatening, Hospitalization, Disabling, Other)
  Sender: FDA-Public Use
  Company Number: A0813488A

PATIENT
  Age: 58 Year
  Sex: Female
  Weight: 57.1 kg

DRUGS (6)
  1. HYCAMTIN [Suspect]
     Dosage: 2.3MGM2 PER DAY
     Route: 048
     Dates: start: 20090921
  2. EFFEXOR XR [Concomitant]
     Route: 048
  3. BROMOCRIPTINE [Concomitant]
     Route: 048
  4. AMBIEN [Concomitant]
     Dosage: 10MG AS REQUIRED
     Route: 048
  5. RANITIDINE [Concomitant]
     Route: 048
  6. WELLBUTRIN [Concomitant]
     Route: 048
     Dates: start: 20090924

REACTIONS (5)
  - FEBRILE NEUTROPENIA [None]
  - FUNGAL INFECTION [None]
  - MECHANICAL VENTILATION [None]
  - NEUTROPENIA [None]
  - THROMBOCYTOPENIA [None]
